FAERS Safety Report 5917874-5 (Version None)
Quarter: 2008Q4

REPORT INFORMATION
  Report Type: 
  Country: None (occurrence: None)
  Receive Date: 20081014
  Receipt Date: 20081007
  Transmission Date: 20090506
  Serious: Yes (Other)
  Sender: FDA-Public Use
  Company Number: BR-ASTRAZENECA-2008UW22052

PATIENT
  Age: 76 Year
  Sex: Female
  Weight: 71 kg

DRUGS (6)
  1. ARIMIDEX [Suspect]
     Indication: BREAST CANCER FEMALE
     Route: 048
     Dates: start: 20070801, end: 20080601
  2. ARIMIDEX [Suspect]
     Route: 048
     Dates: start: 20080927
  3. NICORD [Concomitant]
     Indication: HYPERTENSION
     Route: 048
     Dates: start: 19980101
  4. GALVUS [Concomitant]
     Indication: DIABETES MELLITUS
     Route: 048
     Dates: start: 20050101
  5. ACTOS [Concomitant]
     Indication: DIABETES MELLITUS
     Dosage: 15 MG
     Route: 048
     Dates: start: 20050101
  6. GLUCOSAMINE CONDROITIN [Concomitant]
     Route: 048
     Dates: start: 20000101

REACTIONS (1)
  - METASTASES TO LYMPH NODES [None]
